FAERS Safety Report 21686816 (Version 1)
Quarter: 2022Q4

REPORT INFORMATION
  Report Type: Spontaneous
  Country: GB (occurrence: GB)
  Receive Date: 20221206
  Receipt Date: 20221206
  Transmission Date: 20230113
  Serious: No
  Sender: FDA-Public Use
  Company Number: None

PATIENT
  Age: 44 Year
  Sex: Female
  Weight: 96.6 kg

DRUGS (19)
  1. TOLVAPTAN [Suspect]
     Active Substance: TOLVAPTAN
     Indication: Congenital cystic kidney disease
     Dosage: 45 MILLIGRAM(TABLET UNCOATED)
     Route: 048
     Dates: start: 20191002
  2. TOLVAPTAN [Suspect]
     Active Substance: TOLVAPTAN
     Dosage: 15 MILLIGRAM(TABLET UNCOATED)
     Route: 048
     Dates: start: 20191002
  3. TOLVAPTAN [Suspect]
     Active Substance: TOLVAPTAN
     Dosage: 30 MILLIGRAM(TABLET UNCOATED)
     Route: 048
     Dates: start: 20200103
  4. TOLVAPTAN [Suspect]
     Active Substance: TOLVAPTAN
     Dosage: 60 MILLIGRAM(TABLET UNCOATED)
     Route: 048
     Dates: start: 20200103
  5. TOLVAPTAN [Suspect]
     Active Substance: TOLVAPTAN
     Dosage: 45 MILLIGRAM(TABLET UNCOATED)
     Route: 048
     Dates: start: 20200205
  6. TOLVAPTAN [Suspect]
     Active Substance: TOLVAPTAN
     Dosage: 15 MILLIGRAM(TABLET UNCOATED)
     Route: 048
     Dates: start: 20200205
  7. TOLVAPTAN [Suspect]
     Active Substance: TOLVAPTAN
     Dosage: 30 MILLIGRAM(TABLET UNCOATED)
     Route: 048
     Dates: start: 20200327
  8. TOLVAPTAN [Suspect]
     Active Substance: TOLVAPTAN
     Dosage: 60 MILLIGRAM(TABLET UNCOATED)
     Route: 048
     Dates: start: 20200327
  9. TOLVAPTAN [Suspect]
     Active Substance: TOLVAPTAN
     Dosage: 45 MILLIGRAM(TABLET UNCOATED)
     Route: 048
     Dates: start: 20200930
  10. TOLVAPTAN [Suspect]
     Active Substance: TOLVAPTAN
     Dosage: 15 MILLIGRAM(TABLET UNCOATED)
     Route: 048
     Dates: start: 20200930
  11. TOLVAPTAN [Suspect]
     Active Substance: TOLVAPTAN
     Dosage: 30 MILLIGRAM(TABLET UNCOATED)
     Route: 048
     Dates: start: 20201007
  12. TOLVAPTAN [Suspect]
     Active Substance: TOLVAPTAN
     Dosage: 60 MILLIGRAM (TABLET UNCOATED
     Route: 048
     Dates: start: 20201007
  13. TOLVAPTAN [Suspect]
     Active Substance: TOLVAPTAN
     Dosage: 90 MILLIGRAM(TABLET UNCOATED)
     Route: 048
     Dates: start: 20210325
  14. TOLVAPTAN [Suspect]
     Active Substance: TOLVAPTAN
     Dosage: 30 MILLIGRAM(TABLET UNCOATED0
     Route: 048
     Dates: start: 20210325
  15. TOLVAPTAN [Suspect]
     Active Substance: TOLVAPTAN
     Dosage: 60 MILLIGRAM (TABLET UNCOATED)
     Route: 048
     Dates: start: 20220404
  16. TOLVAPTAN [Suspect]
     Active Substance: TOLVAPTAN
     Dosage: 30 MILLIGRAM(TABLET UNCOATED)
     Route: 048
     Dates: start: 20220404
  17. TOLVAPTAN [Suspect]
     Active Substance: TOLVAPTAN
     Dosage: 30 MILLIGRAM(TABLET UNCOATED)
     Route: 048
     Dates: start: 20220620
  18. TOLVAPTAN [Suspect]
     Active Substance: TOLVAPTAN
     Dosage: 90 MILLIGRAM(TABLET UNCOATED)
     Route: 048
     Dates: start: 20220620
  19. CANDESARTAN [Concomitant]
     Active Substance: CANDESARTAN
     Indication: Product used for unknown indication
     Dosage: 8 MILLIGRAM, QD (1 DAY)
     Route: 048
     Dates: start: 20190911

REACTIONS (4)
  - Abdominal pain upper [Not Recovered/Not Resolved]
  - Gastrooesophageal reflux disease [Not Recovered/Not Resolved]
  - Pain in extremity [Recovering/Resolving]
  - Vulvovaginal candidiasis [Recovered/Resolved]

NARRATIVE: CASE EVENT DATE: 20191005
